FAERS Safety Report 15029932 (Version 1)
Quarter: 2018Q2

REPORT INFORMATION
  Report Type: Spontaneous
  Country: US (occurrence: US)
  Receive Date: 20180619
  Receipt Date: 20180619
  Transmission Date: 20180711
  Serious: No
  Sender: FDA-Public Use
  Company Number: US-BAYER-2018-093087

PATIENT
  Age: 80 Year
  Sex: Male
  Weight: 84 kg

DRUGS (1)
  1. MIRALAX [Suspect]
     Active Substance: POLYETHYLENE GLYCOL 3350
     Indication: GASTROINTESTINAL DISORDER
     Dosage: 1 DF, QD
     Route: 048
     Dates: start: 201805, end: 20180513

REACTIONS (6)
  - Erythema [Recovering/Resolving]
  - Peripheral swelling [Not Recovered/Not Resolved]
  - Pruritus [None]
  - Product use complaint [None]
  - Product use issue [Unknown]
  - Product prescribing issue [Unknown]

NARRATIVE: CASE EVENT DATE: 2018
